FAERS Safety Report 14161851 (Version 2)
Quarter: 2018Q4

REPORT INFORMATION
  Report Type: Spontaneous
  Country: US (occurrence: US)
  Receive Date: 20171106
  Receipt Date: 20181029
  Transmission Date: 20190204
  Serious: No
  Sender: FDA-Public Use
  Company Number: US-CELGENEUS-USA-2015042249

PATIENT
  Age: 72 Year
  Sex: Male
  Weight: 64 kg

DRUGS (3)
  1. REVLIMID [Suspect]
     Active Substance: LENALIDOMIDE
     Indication: PLASMA CELL MYELOMA
     Dosage: 25 MILLIGRAM
     Route: 048
     Dates: start: 20140919
  2. ZOLEDRONIC ACID [Concomitant]
     Active Substance: ZOLEDRONIC ACID
     Indication: PLASMA CELL MYELOMA
     Route: 041
     Dates: start: 20120910, end: 20140714
  3. REVLIMID [Suspect]
     Active Substance: LENALIDOMIDE
     Indication: BONE CANCER
     Dosage: 25 MILLIGRAM
     Route: 048
     Dates: start: 201210, end: 20140714

REACTIONS (4)
  - Memory impairment [Unknown]
  - Anal incontinence [Unknown]
  - Nausea [Recovered/Resolved]
  - Diarrhoea [Recovered/Resolved]

NARRATIVE: CASE EVENT DATE: 201503
